FAERS Safety Report 14943799 (Version 3)
Quarter: 2018Q2

REPORT INFORMATION
  Report Type: Report from Study
  Country: None (occurrence: US)
  Receive Date: 20180528
  Receipt Date: 20180620
  Transmission Date: 20180711
  Serious: Yes (Other)
  Sender: FDA-Public Use
  Company Number: US-ABBVIE-18K-163-2209776-00

PATIENT
  Age: 72 Year
  Sex: Female
  Weight: 90.8 kg

DRUGS (18)
  1. HUMIRA [Suspect]
     Active Substance: ADALIMUMAB
     Indication: RHEUMATOID ARTHRITIS
     Route: 058
     Dates: start: 2016, end: 20180228
  2. METHOCARBAMOL. [Concomitant]
     Active Substance: METHOCARBAMOL
     Indication: MUSCLE SPASMS
  3. MIDNITE [Concomitant]
     Indication: SLEEP DISORDER THERAPY
  4. LEFLUNOMIDE. [Concomitant]
     Active Substance: LEFLUNOMIDE
     Indication: PRODUCT USED FOR UNKNOWN INDICATION
  5. METFORMIN [Concomitant]
     Active Substance: METFORMIN HYDROCHLORIDE
     Indication: DIABETES MELLITUS
  6. ALENDRONATE [Concomitant]
     Active Substance: ALENDRONATE SODIUM
     Indication: ARTHRITIS
  7. METHOTREXATE. [Concomitant]
     Active Substance: METHOTREXATE
     Indication: RHEUMATOID ARTHRITIS
  8. LOSARTAN. [Concomitant]
     Active Substance: LOSARTAN
     Indication: HEART RATE
  9. CITALOPRAM [Concomitant]
     Active Substance: CITALOPRAM HYDROBROMIDE
     Indication: PRODUCT USED FOR UNKNOWN INDICATION
  10. HUMIRA [Suspect]
     Active Substance: ADALIMUMAB
     Route: 058
  11. MAGNESIUM OXIDE. [Concomitant]
     Active Substance: MAGNESIUM OXIDE
     Indication: PRODUCT USED FOR UNKNOWN INDICATION
  12. BUMETANIDE. [Concomitant]
     Active Substance: BUMETANIDE
     Indication: SWELLING
  13. RANITIDINE. [Concomitant]
     Active Substance: RANITIDINE
     Indication: SLEEP DISORDER THERAPY
  14. METOPROLOL. [Concomitant]
     Active Substance: METOPROLOL
     Indication: BLOOD PRESSURE MEASUREMENT
  15. CALTRATE D3 [Concomitant]
     Indication: PRODUCT USED FOR UNKNOWN INDICATION
  16. POTASSIUM [Concomitant]
     Active Substance: POTASSIUM
     Indication: PRODUCT USED FOR UNKNOWN INDICATION
  17. AMITRIPTYLINE [Concomitant]
     Active Substance: AMITRIPTYLINE
     Indication: SLEEP DISORDER THERAPY
  18. FOLIC ACID. [Concomitant]
     Active Substance: FOLIC ACID
     Indication: PRODUCT USED FOR UNKNOWN INDICATION

REACTIONS (14)
  - Nerve compression [Not Recovered/Not Resolved]
  - Fall [Recovered/Resolved]
  - Limb injury [Unknown]
  - Sensitivity to weather change [Unknown]
  - Osteomyelitis [Not Recovered/Not Resolved]
  - Pain [Not Recovered/Not Resolved]
  - Therapeutic response shortened [Unknown]
  - Ligament sprain [Unknown]
  - Dizziness [Recovered/Resolved]
  - Arthralgia [Unknown]
  - Joint injury [Unknown]
  - Joint instability [Not Recovered/Not Resolved]
  - Pain in extremity [Unknown]
  - Balance disorder [Recovered/Resolved]

NARRATIVE: CASE EVENT DATE: 201801
